FAERS Safety Report 10026682 (Version 1)
Quarter: 2014Q1

REPORT INFORMATION
  Report Type: Spontaneous
  Country: US (occurrence: US)
  Receive Date: 20140321
  Receipt Date: 20140321
  Transmission Date: 20141002
  Serious: No
  Sender: FDA-Public Use
  Company Number: US-009507513-1403USA009927

PATIENT
  Age: 47 Year
  Sex: Female

DRUGS (1)
  1. IMPLANON [Suspect]
     Dosage: EVERY 3 YEARS, 1 ROD
     Route: 059
     Dates: start: 20110103

REACTIONS (2)
  - Incorrect drug administration duration [Unknown]
  - Expired drug administered [Unknown]
